FAERS Safety Report 9078479 (Version 1)
Quarter: 2013Q1

REPORT INFORMATION
  Report Type: Report from Study
  Country: US (occurrence: US)
  Receive Date: 20130130
  Receipt Date: 20130130
  Transmission Date: 20140127
  Serious: No
  Sender: FDA-Public Use
  Company Number: US-ABBOTT-12P-163-0974699-00

PATIENT
  Sex: Female

DRUGS (4)
  1. HUMIRA 40 MG/0.8 ML PEN [Suspect]
     Indication: CROHN^S DISEASE
     Route: 058
     Dates: start: 2008
  2. MUCINEX D [Concomitant]
     Indication: SINUS CONGESTION
  3. PRILOSEC [Concomitant]
     Indication: GASTROOESOPHAGEAL REFLUX DISEASE
  4. ESTROVEN [Concomitant]
     Indication: NIGHT SWEATS

REACTIONS (5)
  - Benign hydatidiform mole [Unknown]
  - Nausea [Recovering/Resolving]
  - Upper-airway cough syndrome [Recovering/Resolving]
  - Amenorrhoea [Unknown]
  - Night sweats [Recovering/Resolving]
